FAERS Safety Report 9582071 (Version 1)
Quarter: 2013Q4

REPORT INFORMATION
  Report Type: Spontaneous
  Country: US (occurrence: US)
  Receive Date: 20131002
  Receipt Date: 20131002
  Transmission Date: 20140711
  Serious: No
  Sender: FDA-Public Use
  Company Number: US-AMGEN-USASP2013043313

PATIENT
  Age: 63 Year
  Sex: Female
  Weight: 86.17 kg

DRUGS (11)
  1. ENBREL [Suspect]
     Indication: PRODUCT USED FOR UNKNOWN INDICATION
     Dosage: 50 MG, QWK
     Route: 058
  2. CELEBREX [Concomitant]
     Dosage: 100 MG, UNK
  3. METHOTREXATE [Concomitant]
     Dosage: 2.5 MG, UNK
  4. FOLIC ACID [Concomitant]
     Dosage: UNK
  5. PREVACID [Concomitant]
     Dosage: 30 MG, DR
  6. SINGULAR [Concomitant]
     Dosage: 10 MG, UNK
  7. MULTIVITAMINS, PLAIN [Concomitant]
     Dosage: UNK
  8. VITAMIN B12                        /00056201/ [Concomitant]
     Dosage: 1000 MUG, UNK
  9. VITAMIN D                          /00107901/ [Concomitant]
     Dosage: 400 UNIT, UNK
  10. VITAMIN E                          /00110501/ [Concomitant]
     Dosage: 200 UNIT, UNK
  11. CELEXA                             /00582602/ [Concomitant]
     Dosage: 40 MG, UNK

REACTIONS (1)
  - Therapeutic response decreased [Unknown]
